FAERS Safety Report 25650266 (Version 2)
Quarter: 2025Q3

REPORT INFORMATION
  Report Type: Report from Study
  Country: US (occurrence: US)
  Receive Date: 20250806
  Receipt Date: 20250812
  Transmission Date: 20251020
  Serious: Yes (Life-Threatening, Hospitalization, Other)
  Sender: ASTELLAS
  Company Number: US-ASTELLAS-2025-AER-037327

PATIENT
  Age: 80 Year
  Sex: Male
  Weight: 77.6 kg

DRUGS (49)
  1. XTANDI [Suspect]
     Active Substance: ENZALUTAMIDE
     Indication: Prostate cancer
     Route: 048
     Dates: start: 20250624, end: 20250722
  2. XTANDI [Suspect]
     Active Substance: ENZALUTAMIDE
     Indication: Metastases to spinal cord
  3. XTANDI [Suspect]
     Active Substance: ENZALUTAMIDE
     Indication: Metastases to bone
  4. XOFIGO [Suspect]
     Active Substance: RADIUM RA-223 DICHLORIDE
     Indication: Neoplasm malignant
     Route: 065
  5. FUROSEMIDE [Concomitant]
     Active Substance: FUROSEMIDE
     Indication: Product used for unknown indication
     Route: 065
  6. DURAGESIC [Concomitant]
     Active Substance: FENTANYL
     Indication: Prostate cancer
     Dosage: 25MCG/HR?PLACE 1PATCH ONTO THE SKIN EVERY THIRD DAY
     Route: 062
     Dates: start: 20250610
  7. DURAGESIC [Concomitant]
     Active Substance: FENTANYL
     Indication: Metastases to spinal cord
  8. DURAGESIC [Concomitant]
     Active Substance: FENTANYL
     Indication: Metastases to bone
  9. HYDRODIURIL [Concomitant]
     Active Substance: HYDROCHLOROTHIAZIDE
     Indication: Essential hypertension
     Dosage: TAKE 1 TABLET (25 MG TOTAL) BY MOUTH DAILY.
     Route: 048
     Dates: start: 20250604
  10. IBUPROFEN [Concomitant]
     Active Substance: IBUPROFEN
     Indication: Product used for unknown indication
     Route: 065
  11. NAPROXEN SODIUM [Concomitant]
     Active Substance: NAPROXEN SODIUM
     Indication: Product used for unknown indication
     Route: 065
  12. FOLVITE [Concomitant]
     Active Substance: FOLIC ACID
     Indication: Product used for unknown indication
     Dosage: TAKES DAILY EXCEPT FOR THE DAY PATIENT TAKES METHOTREXATE
     Route: 048
  13. HYDROCODONE [Concomitant]
     Active Substance: HYDROCODONE
     Indication: Product used for unknown indication
     Route: 065
  14. HYDROXYZINE [Concomitant]
     Active Substance: HYDROXYZINE HYDROCHLORIDE
     Indication: Product used for unknown indication
     Route: 065
  15. LOSARTAN POTASSIUM [Concomitant]
     Active Substance: LOSARTAN POTASSIUM
     Indication: Product used for unknown indication
     Route: 065
  16. OMEGA 3 [Concomitant]
     Active Substance: CAPSAICIN
     Indication: Product used for unknown indication
     Route: 065
  17. TRAZODONE HYDROCHLORIDE [Concomitant]
     Active Substance: TRAZODONE HYDROCHLORIDE
     Indication: Product used for unknown indication
     Route: 065
  18. TRELSTAR MIX [Concomitant]
     Indication: Product used for unknown indication
     Route: 065
     Dates: start: 20250404
  19. TYLENOL [Concomitant]
     Active Substance: ACETAMINOPHEN
     Indication: Product used for unknown indication
     Route: 065
  20. ROCEPHIN [Concomitant]
     Active Substance: CEFTRIAXONE SODIUM
     Indication: Product used for unknown indication
     Route: 042
  21. MUCINEX DM [Concomitant]
     Active Substance: DEXTROMETHORPHAN HYDROBROMIDE\GUAIFENESIN
     Indication: Product used for unknown indication
     Dosage: 30- 600 MG PER 12 HR TABLET 2 TABLETS?TAKE 2 TABLETS BY MOUTH 2 TIMES DAILY FOR 10 DAYS.
     Route: 048
     Dates: start: 20250718, end: 20250728
  22. VOLTAREN [Concomitant]
     Active Substance: DICLOFENAC SODIUM
     Indication: Product used for unknown indication
     Dosage: APPLY 2 G TOPICALLY 4 (FOUR) TIMES DAILY. - TOPICAL
     Route: 061
  23. FLONASE [Concomitant]
     Active Substance: FLUTICASONE PROPIONATE
     Indication: Product used for unknown indication
     Route: 045
     Dates: start: 20250718, end: 20250718
  24. HUMALOG [Concomitant]
     Active Substance: INSULIN LISPRO
     Indication: Product used for unknown indication
     Route: 058
  25. MAGNESIUM OXIDE [Concomitant]
     Active Substance: MAGNESIUM OXIDE
     Indication: Product used for unknown indication
     Dosage: TAKE 1 TABLET (400 MG TOTAL) BY MOUTH 2 (TWO) TIMES DAILY.
     Route: 048
  26. ATROVENT [Concomitant]
     Active Substance: IPRATROPIUM BROMIDE
     Indication: Product used for unknown indication
     Dosage: 2 SPRAYS BY NASAL ROUTE {TWO) TIMES DAILY
     Route: 045
     Dates: start: 20250718
  27. PROTONIX [Concomitant]
     Active Substance: PANTOPRAZOLE SODIUM
     Indication: Product used for unknown indication
     Dosage: TAKE 1 TABLET (40 MG TOTAL) BY MOUTH DAILY
     Route: 048
  28. PROTONIX [Concomitant]
     Active Substance: PANTOPRAZOLE SODIUM
     Indication: Product used for unknown indication
     Route: 042
  29. AUGMENTIN [Concomitant]
     Active Substance: AMOXICILLIN\CLAVULANATE POTASSIUM
     Indication: Product used for unknown indication
     Dosage: 500-125 MG PER TABLET?TAKE I TABLET BY MOUTH 3 (THREE) TIMES DAILY FOR 10 DAYS
     Route: 048
     Dates: start: 20250718, end: 20250728
  30. DESYREL [Concomitant]
     Active Substance: TRAZODONE HYDROCHLORIDE
     Indication: Depression
     Dosage: TAKE 1 TABLET BY MOUTH NIGHTLY.
     Route: 048
     Dates: start: 20111219
  31. TYLENOL [Concomitant]
     Active Substance: ACETAMINOPHEN
     Indication: Pain
     Dosage: TAKE 500 MG BY MOUTH EVERY 6 (SIX) HOURS AS NEEDED FOR PAIN.
     Route: 048
  32. VALISONE [Concomitant]
     Active Substance: BETAMETHASONE VALERATE
     Indication: Product used for unknown indication
     Dosage: LOTION?APPLY TO SCALP BID FOR 1 WEEK PRN, ONGOING
     Route: 065
     Dates: start: 20210419
  33. LASIX [Concomitant]
     Active Substance: FUROSEMIDE
     Indication: Oedema
     Dosage: TAKE 1 TABLET (20 MG TOTAL) BY MOUTH DAILY
     Route: 048
     Dates: start: 20250627
  34. FLEXERIL [Concomitant]
     Active Substance: CYCLOBENZAPRINE HYDROCHLORIDE
     Indication: Muscle spasms
     Route: 048
     Dates: start: 20250604
  35. ACETAMINOPHEN\HYDROCODONE [Concomitant]
     Active Substance: ACETAMINOPHEN\HYDROCODONE
     Indication: Pain
     Dosage: 10-325 MG ?TAKE 1 TABLET BY MOUTH EVERY 6 HOURS AS NEEDED FOR PAIN
     Route: 048
     Dates: start: 20250714
  36. ACETAMINOPHEN\HYDROCODONE [Concomitant]
     Active Substance: ACETAMINOPHEN\HYDROCODONE
     Indication: Lumbar radiculopathy
  37. ACETAMINOPHEN\HYDROCODONE [Concomitant]
     Active Substance: ACETAMINOPHEN\HYDROCODONE
     Indication: Intervertebral disc degeneration
  38. ACETAMINOPHEN\HYDROCODONE [Concomitant]
     Active Substance: ACETAMINOPHEN\HYDROCODONE
     Indication: Spinal osteoarthritis
  39. ACETAMINOPHEN\HYDROCODONE [Concomitant]
     Active Substance: ACETAMINOPHEN\HYDROCODONE
     Indication: Drug withdrawal maintenance therapy
  40. MELATONIN [Concomitant]
     Active Substance: MELATONIN
     Indication: Product used for unknown indication
     Dosage: TAKE 1 TABLET (3 MG TOTAL) BY MOUTH NIGHTLY AS NEEDED.
     Route: 048
     Dates: start: 20250718
  41. NIZORAL [Concomitant]
     Active Substance: KETOCONAZOLE
     Indication: Product used for unknown indication
     Dosage: APPLY TOPICALLY TO FACE QD AS NEEDED
     Route: 061
     Dates: start: 20181126, end: 20250627
  42. METROGEL [Concomitant]
     Active Substance: METRONIDAZOLE
     Indication: Product used for unknown indication
     Dosage: APPLY BID TO FACE AS NEEDED, TROPICAL GEL
     Route: 065
     Dates: start: 20181126
  43. COZAAR [Concomitant]
     Active Substance: LOSARTAN POTASSIUM
     Indication: Essential hypertension
     Dosage: TAKE 1 TABLET (100 MG TOTAL) BY MOUTH DAILY.
     Route: 048
     Dates: start: 20250604
  44. EQL Omega 3 fish oil [Concomitant]
     Indication: Malnutrition
     Route: 048
  45. SENOKOT-S/PERI-COLACE [Concomitant]
     Indication: Product used for unknown indication
     Dosage: 8.6 TO 50 MG?TAKE 1 TABLET BY MOUTH 2 (TWO) TIMES DAILY AS NEEDED (IF NO BOWEL MOVEMENT IN PREVIOUS
     Route: 048
     Dates: start: 20250718, end: 20250718
  46. TRELSTAR [Concomitant]
     Active Substance: TRIPTORELIN PAMOATE
     Indication: Product used for unknown indication
     Dosage: INJECT 22.5 MG INTO THE MUSCLE ONCE. GIVEN ON 4-7-25 BY DOCTOR- PATIENT-REPORTED MEDICATION ?INTRAMU
     Route: 030
     Dates: start: 20250407
  47. OCEAN SALINE NASAL SPRAY [Concomitant]
     Active Substance: SODIUM CHLORIDE
     Indication: Nasal congestion
     Route: 045
     Dates: start: 20250718
  48. VISTARIL [Concomitant]
     Active Substance: HYDROXYZINE PAMOATE
     Indication: Product used for unknown indication
     Dosage: TAKE 50 MG BY MOUTH 4 (FOUR) TIMES DAILY AS NEEDED
     Route: 048
  49. FOLIC ACID [Concomitant]
     Active Substance: FOLIC ACID
     Indication: Product used for unknown indication
     Dosage: TAKE 1 TABLET BY MOUTH DAILY. TAKES DAILY EXCEPT FOR THE DAY PT TAKES METHOTREXATE.
     Route: 048

REACTIONS (15)
  - Ventricular tachycardia [Recovering/Resolving]
  - Myocardial infarction [Recovering/Resolving]
  - Syncope [Recovering/Resolving]
  - Oedema [Recovering/Resolving]
  - Asthenia [Recovering/Resolving]
  - Hypokalaemia [Recovering/Resolving]
  - Hypomagnesaemia [Recovering/Resolving]
  - Nausea [Recovering/Resolving]
  - Vomiting [Recovering/Resolving]
  - Essential hypertension [Recovering/Resolving]
  - Diarrhoea [Recovering/Resolving]
  - Hot flush [Not Recovered/Not Resolved]
  - Fatigue [Not Recovered/Not Resolved]
  - Fluid retention [Not Recovered/Not Resolved]
  - Drug ineffective [Unknown]
